FAERS Safety Report 19478232 (Version 1)
Quarter: 2021Q2

REPORT INFORMATION
  Report Type: Spontaneous
  Country: CA (occurrence: CA)
  Receive Date: 20210630
  Receipt Date: 20210630
  Transmission Date: 20210717
  Serious: Yes (Other)
  Sender: FDA-Public Use
  Company Number: CA-PFIZER INC-2021709356

PATIENT
  Age: 71 Year
  Sex: Female

DRUGS (5)
  1. ESCITALOPRAM [Concomitant]
     Active Substance: ESCITALOPRAM OXALATE
     Dosage: UNK
  2. ENBREL [Concomitant]
     Active Substance: ETANERCEPT
     Dosage: 1 DF
  3. RUXIENCE [Suspect]
     Active Substance: RITUXIMAB-PVVR
     Indication: RHEUMATOID ARTHRITIS
     Dosage: 1000 MG DAY 1 AND DAY 15
     Route: 042
     Dates: start: 20210114
  4. SULFASALAZINE. [Concomitant]
     Active Substance: SULFASALAZINE
     Dosage: 1 DF
  5. XELJANZ [Concomitant]
     Active Substance: TOFACITINIB CITRATE
     Dosage: 1 DF

REACTIONS (1)
  - Aortic stenosis [Unknown]

NARRATIVE: CASE EVENT DATE: 202102
